FAERS Safety Report 6545694-X (Version None)
Quarter: 2010Q1

REPORT INFORMATION
  Report Type: 
  Country: None (occurrence: None)
  Receive Date: 20100121
  Receipt Date: 20100116
  Transmission Date: 20100710
  Serious: Yes (Death, Hospitalization)
  Sender: FDA-Public Use
  Company Number: PHHY2010MX02444

PATIENT

DRUGS (2)
  1. TRILEPTAL [Suspect]
     Dosage: 300 MG DAILY
     Dates: start: 20090701
  2. MICARDIS [Concomitant]
     Indication: HYPERTENSION
     Dosage: UNK
     Dates: start: 19900101

REACTIONS (3)
  - CARDIAC FAILURE [None]
  - CONVULSION [None]
  - MYOCARDIAL HAEMORRHAGE [None]
